FAERS Safety Report 5418750-7 (Version None)
Quarter: 2007Q3

REPORT INFORMATION
  Report Type: 
  Country: None (occurrence: None)
  Receive Date: 20070817
  Receipt Date: 20070809
  Transmission Date: 20080115
  Serious: Yes (Other)
  Sender: FDA-Public Use
  Company Number: AU-PFIZER INC-2007060144

PATIENT
  Sex: Female
  Weight: 78 kg

DRUGS (1)
  1. ZELDOX (CAPSULES) [Suspect]
     Indication: SCHIZOPHRENIA
     Dosage: DAILY DOSE:140MG
     Route: 048

REACTIONS (4)
  - ELECTROCARDIOGRAM QT INTERVAL ABNORMAL [None]
  - PALPITATIONS [None]
  - PANIC DISORDER [None]
  - SYNCOPE [None]
